FAERS Safety Report 10644883 (Version 9)
Quarter: 2016Q2

REPORT INFORMATION
  Report Type: Report from Study
  Country: ES (occurrence: ES)
  Receive Date: 20141211
  Receipt Date: 20160609
  Transmission Date: 20160815
  Serious: Yes (Hospitalization)
  Sender: FDA-Public Use
  Company Number: ES-ROCHE-1498948

PATIENT
  Age: 67 Year
  Sex: Male
  Weight: 103.2 kg

DRUGS (36)
  1. OMEPRAZOLE. [Concomitant]
     Active Substance: OMEPRAZOLE
     Indication: PROPHYLAXIS
  2. ALLOPURINOL. [Concomitant]
     Active Substance: ALLOPURINOL
     Indication: HYPERURICAEMIA
     Route: 065
     Dates: start: 2009
  3. APAP [Concomitant]
     Active Substance: ACETAMINOPHEN
     Indication: SLEEP APNOEA SYNDROME
     Route: 065
     Dates: start: 2009
  4. SINTROM [Concomitant]
     Active Substance: ACENOCOUMAROL
     Indication: PERIPHERAL VENOUS DISEASE
     Route: 065
     Dates: start: 20090122
  5. ONDANSETRON [Concomitant]
     Active Substance: ONDANSETRON
     Indication: PREMEDICATION
     Route: 065
     Dates: start: 20130611
  6. BUDESONIDE. [Concomitant]
     Active Substance: BUDESONIDE
     Indication: PNEUMONIA
     Route: 065
     Dates: start: 20131226, end: 20131226
  7. SULFAMETHOXAZOLE AND TRIMETHOPRIM DS [Concomitant]
     Active Substance: SULFAMETHOXAZOLE\TRIMETHOPRIM
     Route: 065
     Dates: start: 20130615
  8. RITUXIMAB [Suspect]
     Active Substance: RITUXIMAB
     Route: 058
     Dates: start: 20130805
  9. RITUXIMAB [Suspect]
     Active Substance: RITUXIMAB
     Route: 058
     Dates: start: 20131028
  10. SUMIAL [Concomitant]
     Active Substance: PROPRANOLOL HYDROCHLORIDE
     Indication: CARDIAC DISORDER
     Route: 065
     Dates: start: 2009, end: 20140419
  11. RITUXIMAB [Suspect]
     Active Substance: RITUXIMAB
     Route: 058
     Dates: start: 20130930
  12. RITUXIMAB [Suspect]
     Active Substance: RITUXIMAB
     Route: 058
     Dates: start: 20131125
  13. RITUXIMAB [Suspect]
     Active Substance: RITUXIMAB
     Route: 058
     Dates: start: 20140618
  14. RITUXIMAB [Suspect]
     Active Substance: RITUXIMAB
     Indication: B-CELL LYMPHOMA
     Dosage: LAST DOSE PRIOR TO SAE 12/JUN/2013
     Route: 042
     Dates: start: 20130610
  15. RITUXIMAB [Suspect]
     Active Substance: RITUXIMAB
     Route: 058
     Dates: start: 20131227
  16. COTRIMOXAZOLE [Concomitant]
     Active Substance: SULFAMETHOXAZOLE\TRIMETHOPRIM
     Indication: INFECTION PROPHYLAXIS
  17. PREVENCOR (SPAIN) [Concomitant]
     Indication: HYPERCHOLESTEROLAEMIA
     Route: 065
     Dates: start: 2009
  18. RITUXIMAB [Suspect]
     Active Substance: RITUXIMAB
     Route: 058
     Dates: start: 20140224
  19. RITUXIMAB [Suspect]
     Active Substance: RITUXIMAB
     Route: 058
     Dates: start: 20141006, end: 20141125
  20. LEVOFLOXACINO [Concomitant]
     Active Substance: LEVOFLOXACIN
     Indication: PNEUMONIA
     Route: 065
     Dates: start: 20140104, end: 20140110
  21. PARACETAMOL [Concomitant]
     Active Substance: ACETAMINOPHEN
     Indication: PREMEDICATION
     Route: 065
     Dates: start: 20130610
  22. FLUMIL (SPAIN) [Concomitant]
     Indication: PNEUMONIA
     Route: 065
     Dates: start: 20140104, end: 20140110
  23. CARVEDILOL. [Concomitant]
     Active Substance: CARVEDILOL
     Indication: CARDIAC DISORDER
     Route: 065
     Dates: start: 20140419, end: 20141006
  24. RITUXIMAB [Suspect]
     Active Substance: RITUXIMAB
     Route: 058
     Dates: start: 20140421
  25. RITUXIMAB [Suspect]
     Active Substance: RITUXIMAB
     Route: 058
     Dates: end: 20141209
  26. CAPTOPRIL. [Concomitant]
     Active Substance: CAPTOPRIL
     Indication: HYPERTENSION
     Route: 065
     Dates: start: 20130606, end: 20130606
  27. PARAPRESS [Concomitant]
     Indication: HYPERTENSION
     Route: 065
     Dates: start: 20130612, end: 20130612
  28. DEXCLORFENIRAMINA [Concomitant]
     Indication: PREMEDICATION
     Route: 065
     Dates: start: 20130610
  29. ZINNAT [Concomitant]
     Active Substance: CEFUROXIME AXETIL
     Indication: PNEUMONIA
     Route: 065
     Dates: start: 20131226, end: 20131231
  30. HIDROCLOROTIAZIDA [Concomitant]
     Active Substance: HYDROCHLOROTHIAZIDE
     Indication: CARDIAC DISORDER
     Route: 065
     Dates: start: 20141006
  31. RITUXIMAB [Suspect]
     Active Substance: RITUXIMAB
     Indication: B-CELL LYMPHOMA
     Dosage: LAST DOSE PRIOR TO SAE 06/OCT/2014
     Route: 058
     Dates: start: 20130708, end: 20141209
  32. RITUXIMAB [Suspect]
     Active Substance: RITUXIMAB
     Route: 058
     Dates: start: 20140811
  33. RITUXIMAB [Suspect]
     Active Substance: RITUXIMAB
     Route: 058
     Dates: start: 20130905
  34. HIBOR [Concomitant]
     Active Substance: BEMIPARIN SODIUM
     Indication: ATRIAL FIBRILLATION
     Route: 065
     Dates: start: 20090318, end: 20140124
  35. FLUTOX (SPAIN) [Concomitant]
     Indication: PNEUMONIA
     Route: 065
     Dates: start: 20131226, end: 20140101
  36. ENALAPRIL [Concomitant]
     Active Substance: ENALAPRIL
     Indication: HYPERTENSION
     Route: 065
     Dates: start: 20140421

REACTIONS (1)
  - Progressive multifocal leukoencephalopathy [Recovered/Resolved with Sequelae]

NARRATIVE: CASE EVENT DATE: 20141122
